FAERS Safety Report 11833058 (Version 2)
Quarter: 2016Q2

REPORT INFORMATION
  Report Type: Spontaneous
  Country: FR (occurrence: FR)
  Receive Date: 20151214
  Receipt Date: 20160414
  Transmission Date: 20160815
  Serious: Yes (Death, Hospitalization)
  Sender: FDA-Public Use
  Company Number: FR-PFIZER INC-2015423566

PATIENT
  Age: 76 Year
  Sex: Female
  Weight: 58 kg

DRUGS (1)
  1. BOSULIF [Suspect]
     Active Substance: BOSUTINIB MONOHYDRATE
     Indication: ACUTE LYMPHOCYTIC LEUKAEMIA
     Dosage: 500 MG, DAILY
     Dates: start: 20151125, end: 20151128

REACTIONS (8)
  - Disease progression [Unknown]
  - Acute lymphocytic leukaemia [Unknown]
  - Diarrhoea [Recovering/Resolving]
  - Product use issue [Unknown]
  - Cerebrovascular accident [Fatal]
  - Vomiting [Recovering/Resolving]
  - Nausea [Unknown]
  - General physical health deterioration [Unknown]

NARRATIVE: CASE EVENT DATE: 201511
